FAERS Safety Report 7134183-X (Version None)
Quarter: 2010Q4

REPORT INFORMATION
  Report Type: 
  Country: None (occurrence: None)
  Receive Date: 20101117
  Receipt Date: 20101101
  Transmission Date: 20110411
  Serious: Yes (Other)
  Sender: FDA-Public Use
  Company Number: 021450

PATIENT
  Sex: Female

DRUGS (5)
  1. CIMZIA [Suspect]
     Dosage: 400 MG, LOADING DOSE SUBCUTANEOUS, SUBCUTANEOUS, SUBCUTANEOUS
     Route: 058
     Dates: end: 20100501
  2. CIMZIA [Suspect]
     Dosage: 400 MG, LOADING DOSE SUBCUTANEOUS, SUBCUTANEOUS, SUBCUTANEOUS
     Route: 058
     Dates: end: 20101012
  3. CIMZIA [Suspect]
     Dosage: 400 MG, LOADING DOSE SUBCUTANEOUS, SUBCUTANEOUS, SUBCUTANEOUS
     Route: 058
     Dates: start: 20100401
  4. METHOTREXATE [Concomitant]
  5. ESCITALOPRAM [Concomitant]

REACTIONS (3)
  - DEPRESSION [None]
  - INFECTION [None]
  - SUICIDE ATTEMPT [None]
